FAERS Safety Report 25009543 (Version 1)
Quarter: 2025Q1

REPORT INFORMATION
  Report Type: Spontaneous
  Country: US (occurrence: US)
  Receive Date: 20250225
  Receipt Date: 20250225
  Transmission Date: 20250408
  Serious: No
  Sender: AMGEN
  Company Number: US-AMGEN-USASP2025033586

PATIENT

DRUGS (1)
  1. REPATHA [Suspect]
     Active Substance: EVOLOCUMAB
     Indication: Product used for unknown indication
     Dosage: 140 MILLIGRAM, Q2WK
     Route: 065

REACTIONS (10)
  - Muscle spasms [Unknown]
  - Pain in extremity [Unknown]
  - Coronary artery disease [Unknown]
  - Chronic left ventricular failure [Unknown]
  - Cardiac stress test abnormal [Unknown]
  - Pulmonary mass [Unknown]
  - Diastolic dysfunction [Unknown]
  - Type V hyperlipidaemia [Unknown]
  - Essential hypertension [Unknown]
  - Body mass index abnormal [Unknown]
